FAERS Safety Report 6209483-8 (Version None)
Quarter: 2009Q2

REPORT INFORMATION
  Report Type: 
  Country: None (occurrence: None)
  Receive Date: 20090601
  Receipt Date: 20090126
  Transmission Date: 20091009
  Serious: No
  Sender: FDA-Public Use
  Company Number: A0765290A

PATIENT
  Age: 8 Month
  Sex: Female

DRUGS (2)
  1. AUGMENTIN '125' [Suspect]
     Dates: start: 20090116, end: 20090124
  2. LOTRISONE [Concomitant]

REACTIONS (2)
  - PYREXIA [None]
  - TONGUE DISCOLOURATION [None]
